FAERS Safety Report 16657739 (Version 1)
Quarter: 2019Q3

REPORT INFORMATION
  Report Type: Other
  Country: ES (occurrence: ES)
  Receive Date: 20190801
  Receipt Date: 20190801
  Transmission Date: 20191004
  Serious: Yes (Hospitalization)
  Sender: FDA-Public Use
  Company Number: ES-APOTEX-2019AP019153

PATIENT
  Age: 12 Year
  Sex: Female

DRUGS (4)
  1. LACOSAMIDA [Suspect]
     Active Substance: LACOSAMIDE
     Indication: SUBDURAL EMPYEMA
     Dosage: 50 MG, Q.12H
     Route: 048
     Dates: start: 20190213
  2. METRONIDAZOL /00012502/ [Suspect]
     Active Substance: METRONIDAZOLE BENZOATE
     Indication: SUBDURAL EMPYEMA
     Dosage: 500 MG, TID
     Route: 048
     Dates: start: 20190213, end: 20190508
  3. OMEPRAZOLE. [Suspect]
     Active Substance: OMEPRAZOLE
     Indication: PROPHYLAXIS
     Dosage: 20 MG, QD
     Route: 048
     Dates: start: 20190131
  4. ACETAZOLAMIDA [Concomitant]
     Active Substance: ACETAZOLAMIDE
     Indication: SUBDURAL EMPYEMA
     Dosage: 250 MG, Q.6H
     Route: 048
     Dates: start: 20170215

REACTIONS (2)
  - Dysaesthesia [Unknown]
  - Vomiting [Recovered/Resolved]

NARRATIVE: CASE EVENT DATE: 20190506
